FAERS Safety Report 8330664-1 (Version None)
Quarter: 2012Q2

REPORT INFORMATION
  Report Type: 
  Country: None (occurrence: None)
  Receive Date: 20120502
  Receipt Date: 20120409
  Transmission Date: 20120825
  Serious: No
  Sender: FDA-Public Use
  Company Number: US-AMGEN-USASP2011042242

PATIENT
  Age: 63 Year
  Sex: Male

DRUGS (2)
  1. ENBREL [Suspect]
     Indication: PSORIATIC ARTHROPATHY
     Dosage: 25 MG, 2 TIMES/WK
     Dates: start: 20020301
  2. ENBREL [Suspect]
     Indication: PSORIASIS

REACTIONS (6)
  - DRUG INEFFECTIVE [None]
  - PSORIATIC ARTHROPATHY [None]
  - MALAISE [None]
  - PSORIASIS [None]
  - NASOPHARYNGITIS [None]
  - PYREXIA [None]
